FAERS Safety Report 7642899-1 (Version None)
Quarter: 2011Q3

REPORT INFORMATION
  Report Type: 
  Country: None (occurrence: None)
  Receive Date: 20110728
  Receipt Date: 20110720
  Transmission Date: 20111222
  Serious: Yes (Other)
  Sender: FDA-Public Use
  Company Number: PHHY2011DE65820

PATIENT
  Sex: Female

DRUGS (2)
  1. TERBINAFINE HCL [Suspect]
     Indication: ONYCHOMYCOSIS
     Dosage: 250 MG FOR 2 WEEKS
     Route: 048
     Dates: start: 20110506, end: 20110501
  2. TERBINAFINE HCL [Suspect]
     Dosage: 125 MG, QD
     Route: 048
     Dates: start: 20110501, end: 20110703

REACTIONS (2)
  - FATIGUE [None]
  - HYPERHIDROSIS [None]
